FAERS Safety Report 14119264 (Version 1)
Quarter: 2017Q4

REPORT INFORMATION
  Report Type: Spontaneous
  Country: US (occurrence: US)
  Receive Date: 20171024
  Receipt Date: 20171024
  Transmission Date: 20180321
  Serious: Yes (Other)
  Sender: FDA-Public Use
  Company Number: US-PFIZER INC-2017453004

PATIENT
  Sex: Female
  Weight: 72.57 kg

DRUGS (4)
  1. SERTRALINE HCL [Suspect]
     Active Substance: SERTRALINE HYDROCHLORIDE
     Indication: BACK INJURY
     Dosage: 125 MG, 1X/DAY (100 MG TAB AND THE 25 MG TAB SO TOTAL 125 (MG))
     Route: 048
  2. SERTRALINE HCL [Suspect]
     Active Substance: SERTRALINE HYDROCHLORIDE
     Indication: NERVOUSNESS
  3. LOSARTAN. [Concomitant]
     Active Substance: LOSARTAN
     Indication: HYPERTENSION
     Dosage: 50 MG,TABLET, ORALLY
     Route: 048
     Dates: start: 2010
  4. SERTRALINE HCL [Suspect]
     Active Substance: SERTRALINE HYDROCHLORIDE
     Indication: CRYING

REACTIONS (8)
  - Tremor [Unknown]
  - Feeding disorder [Unknown]
  - Anxiety [Unknown]
  - Weight decreased [Unknown]
  - Panic disorder [Unknown]
  - Suicidal ideation [Unknown]
  - Fear [Unknown]
  - Nervousness [Unknown]
